FAERS Safety Report 23549440 (Version 1)
Quarter: 2024Q1

REPORT INFORMATION
  Report Type: Spontaneous
  Country: US (occurrence: None)
  Receive Date: 20240220
  Receipt Date: 20240220
  Transmission Date: 20240410
  Serious: Yes (Hospitalization)
  Sender: FDA-Public Use
  Company Number: None

PATIENT
  Age: 49 Year
  Sex: Female
  Weight: 81 kg

DRUGS (5)
  1. .DELTA.9-TETRAHYDROCANNABINOL\HERBALS [Suspect]
     Active Substance: .DELTA.9-TETRAHYDROCANNABINOL\HERBALS
     Indication: Anxiety
     Route: 048
     Dates: start: 20240217, end: 20240217
  2. UNSPECIFIED INGREDIENT [Concomitant]
     Active Substance: UNSPECIFIED INGREDIENT
  3. SEROQUEL [Concomitant]
     Active Substance: QUETIAPINE FUMARATE
  4. LEVOTHYROXINE [Concomitant]
     Active Substance: LEVOTHYROXINE\LEVOTHYROXINE SODIUM
  5. LAMOTRIGINE [Concomitant]
     Active Substance: LAMOTRIGINE

REACTIONS (5)
  - Vomiting [None]
  - Myocardial infarction [None]
  - Loss of consciousness [None]
  - Cerebrovascular accident [None]
  - Chest pain [None]

NARRATIVE: CASE EVENT DATE: 20240217
